FAERS Safety Report 23716311 (Version 1)
Quarter: 2024Q2

REPORT INFORMATION
  Report Type: Report from Study
  Country: DO (occurrence: DO)
  Receive Date: 20240408
  Receipt Date: 20240408
  Transmission Date: 20240716
  Serious: Yes (Death, Hospitalization)
  Sender: FDA-Public Use
  Company Number: DO-JNJFOC-20240409004

PATIENT
  Age: 84 Year
  Sex: Male
  Weight: 74 kg

DRUGS (1)
  1. IBRUTINIB [Suspect]
     Active Substance: IBRUTINIB
     Indication: Chronic lymphocytic leukaemia
     Dosage: 1 TABLET
     Route: 048
     Dates: start: 20191204

REACTIONS (3)
  - Myocardial infarction [Fatal]
  - Fall [Fatal]
  - Contusion [Fatal]

NARRATIVE: CASE EVENT DATE: 20240324
